FAERS Safety Report 23648465 (Version 2)
Quarter: 2024Q1

REPORT INFORMATION
  Report Type: Spontaneous
  Country: JP (occurrence: None)
  Receive Date: 20240319
  Receipt Date: 20240321
  Transmission Date: 20240410
  Serious: Yes (Life-Threatening)
  Sender: FDA-Public Use
  Company Number: 2024A065565

PATIENT
  Age: 80 Year
  Sex: Male

DRUGS (2)
  1. ONDEXXYA [Suspect]
     Active Substance: ANDEXANET ALFA
     Dosage: METHOD B: 800 MG IV AT A RATE OF 30 MG/MIN FOLLOWED BY 960 MG IV AT A RATE OF 8 MG/MIN FOR 2 H
     Route: 042
  2. EDOXABAN TOSYLATE [Concomitant]
     Active Substance: EDOXABAN TOSYLATE
     Dosage: DOSE UNKNOWN
     Route: 048

REACTIONS (2)
  - Heparin resistance [Recovered/Resolved]
  - Off label use [Unknown]
